FAERS Safety Report 6159780-X (Version None)
Quarter: 2009Q2

REPORT INFORMATION
  Report Type: 
  Country: None (occurrence: None)
  Receive Date: 20090420
  Receipt Date: 20090409
  Transmission Date: 20091009
  Serious: Yes (Other)
  Sender: FDA-Public Use
  Company Number: US-ELI_LILLY_AND_COMPANY-US200904002132

PATIENT
  Sex: Female

DRUGS (10)
  1. FORTEO [Suspect]
     Dates: start: 20071101
  2. EFFEXOR [Concomitant]
  3. SYNTHROID [Concomitant]
  4. LOVAZA [Concomitant]
  5. LIPITOR [Concomitant]
     Dosage: 10 MG, UNK
  6. METOPROLOL SUCCINATE [Concomitant]
     Dosage: 37.5 MG, DAILY (1/D)
  7. STROVITE [Concomitant]
     Dosage: 1 D/F, DAILY (1/D)
  8. ASPIRIN [Concomitant]
     Dosage: 81 MG, UNK
  9. VITAMIN D [Concomitant]
  10. CITRICAL [Concomitant]

REACTIONS (2)
  - BREAST CANCER [None]
  - SCIATICA [None]
